FAERS Safety Report 17178959 (Version 1)
Quarter: 2019Q4

REPORT INFORMATION
  Report Type: Spontaneous
  Country: US (occurrence: US)
  Receive Date: 20191219
  Receipt Date: 20191219
  Transmission Date: 20200122
  Serious: No
  Sender: FDA-Public Use
  Company Number: US-JNJFOC-20191144187

PATIENT
  Sex: Female
  Weight: 17.71 kg

DRUGS (1)
  1. JR TYLENOL [Suspect]
     Active Substance: ACETAMINOPHEN
     Indication: PYREXIA
     Dosage: 1 1/2 TABLET THRICE DAILY
     Route: 048

REACTIONS (2)
  - Product administered to patient of inappropriate age [Unknown]
  - Wrong technique in product usage process [Unknown]
